FAERS Safety Report 6936673-9 (Version None)
Quarter: 2010Q3

REPORT INFORMATION
  Report Type: 
  Country: None (occurrence: None)
  Receive Date: 20100818
  Receipt Date: 20100809
  Transmission Date: 20110219
  Serious: Yes (Hospitalization, Other)
  Sender: FDA-Public Use
  Company Number: 2010SP001482

PATIENT
  Age: 50 Year
  Sex: Female
  Weight: 84 kg

DRUGS (12)
  1. CICLESONIDE HFA (160 UG) [Suspect]
     Indication: RHINITIS PERENNIAL
     Dosage: 160 UG;BID;INHALATION
     Route: 055
     Dates: start: 20091016, end: 20100420
  2. PRILOSEC [Concomitant]
  3. MULTI-VITAMINS [Concomitant]
  4. STOOL SOFTENER [Concomitant]
  5. TRILYTE [Concomitant]
  6. HYDROCHLOROTHIAZIDE [Concomitant]
  7. VITAMIN B12 /00056201/ [Concomitant]
  8. OSCAL /00108001/ [Concomitant]
  9. CHLORASEPTIC [Concomitant]
  10. EXCEDRIN /00214201/ [Concomitant]
  11. TYLENOL (CAPLET) [Concomitant]
  12. MUCINEX [Concomitant]

REACTIONS (9)
  - ABDOMINAL ABSCESS [None]
  - DIARRHOEA [None]
  - EROSIVE OESOPHAGITIS [None]
  - GASTROOESOPHAGEAL REFLUX DISEASE [None]
  - ILEUS [None]
  - INTESTINAL HAEMORRHAGE [None]
  - MESENTERIC VEIN THROMBOSIS [None]
  - PORTAL VEIN THROMBOSIS [None]
  - SPLENIC VEIN THROMBOSIS [None]
